FAERS Safety Report 16006120 (Version 1)
Quarter: 2019Q1

REPORT INFORMATION
  Report Type: Spontaneous
  Country: US (occurrence: US)
  Receive Date: 20190201
  Receipt Date: 20190201
  Transmission Date: 20190418
  Serious: No
  Sender: FDA-Public Use
  Company Number: None

PATIENT
  Sex: Female

DRUGS (1)
  1. SIMPONI ARIA [Suspect]
     Active Substance: GOLIMUMAB
     Indication: PSORIATIC ARTHROPATHY
     Dosage: ?          OTHER FREQUENCY:EVERY 4 WEEKS ;?
     Route: 042
     Dates: start: 20181103, end: 20181231

REACTIONS (5)
  - Infusion related reaction [None]
  - Feeling hot [None]
  - Therapy cessation [None]
  - Hypersensitivity [None]
  - Dyspnoea [None]
